FAERS Safety Report 10129266 (Version 1)
Quarter: 2014Q2

REPORT INFORMATION
  Report Type: Spontaneous
  Country: US (occurrence: US)
  Receive Date: 20140428
  Receipt Date: 20140428
  Transmission Date: 20141212
  Serious: No
  Sender: FDA-Public Use
  Company Number: US-ABBVIE-14P-163-1208846-00

PATIENT
  Age: 50 Year
  Sex: Male

DRUGS (2)
  1. ANDROGEL [Suspect]
     Indication: HYPOGONADISM
     Dosage: 4 PUMPS
     Route: 061
     Dates: end: 201308
  2. ANDROGEL [Suspect]
     Dosage: DECREASED DOSE, UNKNOWN TO WHAT.
     Route: 061
     Dates: start: 201308

REACTIONS (1)
  - Haematocrit increased [Recovered/Resolved]
